FAERS Safety Report 5019899-3 (Version None)
Quarter: 2006Q2

REPORT INFORMATION
  Report Type: 
  Country: None (occurrence: None)
  Receive Date: 20060605
  Receipt Date: 20060605
  Transmission Date: 20061013
  Serious: Yes (Other)
  Sender: FDA-Public Use
  Company Number: None

PATIENT
  Age: 20 Year
  Sex: Female
  Weight: 57.5 kg

DRUGS (4)
  1. AMBISOME [Suspect]
     Indication: CANDIDIASIS
     Dosage: 325 MG ONCE DAILY IV
     Route: 042
     Dates: start: 20060103, end: 20060103
  2. AMBISOME [Suspect]
     Indication: HEPATIC NEOPLASM
     Dosage: 325 MG ONCE DAILY IV
     Route: 042
     Dates: start: 20060103, end: 20060103
  3. AMBISOME [Suspect]
     Indication: LUNG NEOPLASM
     Dosage: 325 MG ONCE DAILY IV
     Route: 042
     Dates: start: 20060103, end: 20060103
  4. AMBISOME [Suspect]
     Indication: SPLEEN DISORDER
     Dosage: 325 MG ONCE DAILY IV
     Route: 042
     Dates: start: 20060103, end: 20060103

REACTIONS (2)
  - ANAPHYLACTIC REACTION [None]
  - INFUSION RELATED REACTION [None]
